FAERS Safety Report 12763458 (Version 1)
Quarter: 2016Q3

REPORT INFORMATION
  Report Type: Spontaneous
  Country: DE (occurrence: DE)
  Receive Date: 20160920
  Receipt Date: 20160920
  Transmission Date: 20161109
  Serious: Yes (Other)
  Sender: FDA-Public Use
  Company Number: DE-JNJFOC-20160911496

PATIENT
  Age: 80 Year
  Sex: Male
  Weight: 86 kg

DRUGS (1)
  1. IMBRUVICA [Suspect]
     Active Substance: IBRUTINIB
     Indication: CHRONIC LYMPHOCYTIC LEUKAEMIA
     Route: 048
     Dates: start: 201605, end: 20160909

REACTIONS (2)
  - Pleural effusion [Not Recovered/Not Resolved]
  - Condition aggravated [None]

NARRATIVE: CASE EVENT DATE: 201606
